FAERS Safety Report 11877303 (Version 2)
Quarter: 2016Q1

REPORT INFORMATION
  Report Type: Spontaneous
  Country: US (occurrence: US)
  Receive Date: 20151229
  Receipt Date: 20160114
  Transmission Date: 20160526
  Serious: No
  Sender: FDA-Public Use
  Company Number: US-PFIZER INC-2015443887

PATIENT
  Age: 77 Year
  Sex: Female

DRUGS (3)
  1. ZOCOR [Concomitant]
     Active Substance: SIMVASTATIN
     Indication: BLOOD CHOLESTEROL
  2. TYLENOL [Suspect]
     Active Substance: ACETAMINOPHEN
     Dosage: UNK, AS NEEDED
  3. LATANOPROST. [Suspect]
     Active Substance: LATANOPROST
     Dosage: 2.5 ML, UNK

REACTIONS (2)
  - Eye irritation [Unknown]
  - Dry eye [Unknown]
